FAERS Safety Report 4688076-8 (Version None)
Quarter: 2005Q2

REPORT INFORMATION
  Report Type: 
  Country: None (occurrence: None)
  Receive Date: 20050609
  Receipt Date: 20050531
  Transmission Date: 20051028
  Serious: Yes (Other)
  Sender: FDA-Public Use
  Company Number: 2005044771

PATIENT
  Sex: Female
  Weight: 72.5755 kg

DRUGS (4)
  1. BEXTRA [Suspect]
     Indication: OSTEOARTHRITIS
     Dosage: 10 MG (10 MG 1 IN 1 D) ORAL
     Route: 048
  2. INSULIN [Concomitant]
  3. THYROID TAB [Concomitant]
  4. TRAZODONE HCL [Concomitant]

REACTIONS (2)
  - ACQUIRED OESOPHAGEAL WEB [None]
  - DYSPHAGIA [None]
